FAERS Safety Report 6176747-6 (Version None)
Quarter: 2009Q2

REPORT INFORMATION
  Report Type: 
  Country: None (occurrence: None)
  Receive Date: 20090501
  Receipt Date: 20090420
  Transmission Date: 20091009
  Serious: Yes (Hospitalization)
  Sender: FDA-Public Use
  Company Number: DE-CELGENEUS-062-C5013-07051253

PATIENT
  Sex: Male
  Weight: 98 kg

DRUGS (5)
  1. CC-5013 [Suspect]
     Indication: MULTIPLE MYELOMA
     Route: 048
     Dates: start: 20070514, end: 20070523
  2. DEXAMETHASONE TAB [Suspect]
     Indication: MULTIPLE MYELOMA
     Route: 065
     Dates: start: 20070514, end: 20070523
  3. CALCIUM [Concomitant]
     Route: 048
     Dates: start: 20070519
  4. POTASSIUM CHLORIDE [Concomitant]
     Route: 048
     Dates: start: 20070519
  5. MAGNESIA [Concomitant]
     Route: 048
     Dates: start: 20070519

REACTIONS (1)
  - MUSCLE SPASMS [None]
